FAERS Safety Report 4830897-2 (Version None)
Quarter: 2005Q4

REPORT INFORMATION
  Report Type: 
  Country: None (occurrence: None)
  Receive Date: 20051114
  Receipt Date: 20051104
  Transmission Date: 20060501
  Serious: Yes (Hospitalization, Disabling)
  Sender: FDA-Public Use
  Company Number: GXKR2005DK01924

PATIENT
  Age: 72 Year
  Sex: Female

DRUGS (2)
  1. METFORMIN HCL [Suspect]
     Indication: DIABETES MELLITUS
     Dosage: 500 MG, BID
  2. RAMIPRIL [Suspect]
     Indication: HYPERTENSION
     Dosage: 10 MG, QD, ORAL
     Route: 048

REACTIONS (11)
  - BLOOD AMYLASE INCREASED [None]
  - CARDIOVASCULAR DISORDER [None]
  - CEREBRAL INFARCTION [None]
  - COMA [None]
  - DEHYDRATION [None]
  - DISSEMINATED INTRAVASCULAR COAGULATION [None]
  - GASTROENTERITIS [None]
  - HAEMODIALYSIS [None]
  - LACTIC ACIDOSIS [None]
  - PARALYSIS [None]
  - RENAL FAILURE ACUTE [None]
